FAERS Safety Report 9384648 (Version 1)
Quarter: 2013Q3

REPORT INFORMATION
  Report Type: Spontaneous
  Country: DK (occurrence: DK)
  Receive Date: 20130705
  Receipt Date: 20130705
  Transmission Date: 20140515
  Serious: Yes (Other)
  Sender: FDA-Public Use
  Company Number: DK-PFIZER INC-2013197305

PATIENT
  Age: 60 Year
  Sex: Female

DRUGS (2)
  1. FARMORUBICIN [Suspect]
     Indication: INVASIVE DUCTAL BREAST CARCINOMA
     Dosage: 270 MG/M2 TOTAL DOSE
     Dates: start: 2009
  2. CYCLOPHOSPHAMIDE [Concomitant]
     Indication: INVASIVE DUCTAL BREAST CARCINOMA
     Dates: start: 2009

REACTIONS (1)
  - Congestive cardiomyopathy [Not Recovered/Not Resolved]
